FAERS Safety Report 10692409 (Version 1)
Quarter: 2015Q1

REPORT INFORMATION
  Report Type: Spontaneous
  Country: US (occurrence: None)
  Receive Date: 20150105
  Receipt Date: 20150105
  Transmission Date: 20150720
  Serious: Yes (Other)
  Sender: FDA-Public Use
  Company Number: None

PATIENT
  Age: 42 Year
  Sex: Female
  Weight: 69.4 kg

DRUGS (1)
  1. PAROXETINE [Suspect]
     Active Substance: PAROXETINE\PAROXETINE HYDROCHLORIDE
     Indication: ANXIETY
     Dosage: 1 PILL QD ORAL PRIOR TO 8/2009 THROUGH 10/2013
     Route: 048

REACTIONS (1)
  - Alcohol abuse [None]

NARRATIVE: CASE EVENT DATE: 20131022
